FAERS Safety Report 11749871 (Version 1)
Quarter: 2015Q4

REPORT INFORMATION
  Report Type: Spontaneous
  Country: US (occurrence: US)
  Receive Date: 20151118
  Receipt Date: 20151118
  Transmission Date: 20160304
  Serious: Yes (Hospitalization)
  Sender: FDA-Public Use
  Company Number: US-PROCTER_AND_GAMBLE-GS15021418

PATIENT
  Age: 58 Year
  Sex: Female

DRUGS (4)
  1. OLAYFEMFACONDTRTRGNRSTDAILYSERSENFRGFRNONUV50ML [Suspect]
     Active Substance: COSMETICS
     Dosage: NICKEL SIZED AMOUNT ONCE A DAY
     Route: 061
     Dates: end: 201504
  2. OLAYFEMFACONDTRTRGNRSTUVDFNSSPF50LOTNORUV50ML [Suspect]
     Active Substance: AVOBENZONE\HOMOSALATE\OCTISALATE\OCTOCRYLENE\OXYBENZONE
     Dosage: NICKEL SIZED AMOUNT, ONCE A DAY
     Route: 061
     Dates: end: 201504
  3. OLAY TOTAL EFFECTS TONE CORRECTING MOISTURIZER BROADSPECTRUM SPF 15 MEDIUM [Suspect]
     Active Substance: AVOBENZONE\OCTISALATE\OCTOCRYLENE
     Dosage: NICKEL SIZED AMOUNT, ONCE A DAY
     Route: 061
     Dates: end: 201504
  4. OLAYFEMFACONDTRTRGNRSTDAILYSERSENFRGFRNONUV50ML [Suspect]
     Active Substance: COSMETICS
     Dosage: NICKEL SIZED AMOUNT, ONCE A DAY
     Route: 061
     Dates: end: 201504

REACTIONS (6)
  - Hypersensitivity [Recovered/Resolved]
  - Swelling face [Recovered/Resolved]
  - Local swelling [Recovered/Resolved]
  - Skin disorder [Recovered/Resolved]
  - Staphylococcal infection [Unknown]
  - Skin irritation [Recovered/Resolved]

NARRATIVE: CASE EVENT DATE: 2014
